FAERS Safety Report 11625704 (Version 1)
Quarter: 2015Q4

REPORT INFORMATION
  Report Type: Spontaneous
  Country: CA (occurrence: CA)
  Receive Date: 20151013
  Receipt Date: 20151013
  Transmission Date: 20160304
  Serious: Yes (Death, Other)
  Sender: FDA-Public Use
  Company Number: CA-PURDUE PHARMA-CAN-2015-0006160

PATIENT
  Age: 62 Year
  Sex: Male

DRUGS (1)
  1. MORPHINE SULFATE. [Suspect]
     Active Substance: MORPHINE SULFATE
     Indication: PRODUCT USED FOR UNKNOWN INDICATION
     Dosage: UNK
     Route: 065

REACTIONS (8)
  - Somnolence [Unknown]
  - Suicidal ideation [Unknown]
  - Decreased appetite [Unknown]
  - Intentional overdose [Fatal]
  - Toxicity to various agents [Fatal]
  - Drug abuse [Unknown]
  - Drug dependence [Unknown]
  - Depression [Unknown]
